FAERS Safety Report 7683035-5 (Version None)
Quarter: 2011Q3

REPORT INFORMATION
  Report Type: 
  Country: None (occurrence: None)
  Receive Date: 20110812
  Receipt Date: 20110812
  Transmission Date: 20111222
  Serious: Yes (Other)
  Sender: FDA-Public Use
  Company Number: None

PATIENT
  Sex: Female
  Weight: 90.7194 kg

DRUGS (1)
  1. METRONIDAZOLE [Suspect]
     Indication: INFECTION
     Dosage: 500 MG 1 PER DAY
     Dates: start: 20110718, end: 20110720

REACTIONS (2)
  - VOMITING [None]
  - MALAISE [None]
